FAERS Safety Report 5505435-1 (Version None)
Quarter: 2007Q4

REPORT INFORMATION
  Report Type: 
  Country: None (occurrence: None)
  Receive Date: 20071102
  Receipt Date: 20071019
  Transmission Date: 20080405
  Serious: Yes (Other)
  Sender: FDA-Public Use
  Company Number: ES-GENENTECH-244087

PATIENT
  Sex: Female

DRUGS (4)
  1. EFALIZUMAB [Suspect]
     Indication: PSORIASIS
     Dosage: 1 MG, 1/WEEK
     Route: 058
     Dates: start: 20060315
  2. METHOTREXATE [Concomitant]
     Indication: DRUG USE FOR UNKNOWN INDICATION
  3. CAPTOPRIL [Concomitant]
     Indication: HYPERTENSION
  4. GLUCOSAMINE [Concomitant]
     Indication: OSTEOARTHRITIS

REACTIONS (1)
  - ENDOMETRIAL CANCER [None]
